FAERS Safety Report 5237626-1 (Version None)
Quarter: 2007Q1

REPORT INFORMATION
  Report Type: 
  Country: None (occurrence: None)
  Receive Date: 20070214
  Receipt Date: 20070201
  Transmission Date: 20070707
  Serious: Yes (Hospitalization)
  Sender: FDA-Public Use
  Company Number: PHBS2006JP18347

PATIENT
  Age: 48 Year
  Sex: Male
  Weight: 65 kg

DRUGS (12)
  1. LAMISIL [Suspect]
     Indication: NAIL TINEA
     Dosage: 125 MG/D
     Route: 048
     Dates: start: 20061115, end: 20061121
  2. DOGMATYL [Concomitant]
     Indication: DEPRESSION
     Dosage: 100 MG/D
     Route: 048
     Dates: start: 20061102
  3. LENDORMIN [Concomitant]
     Indication: DEPRESSION
     Dosage: 0.25 MG/D
     Route: 048
     Dates: start: 20061102
  4. LUVOX [Concomitant]
     Indication: DEPRESSION
     Dosage: 50 MG/D
     Route: 048
     Dates: start: 20061102
  5. PURSENNID [Concomitant]
     Indication: CONSTIPATION
     Dosage: 12 MG/D
     Route: 048
     Dates: start: 20061110
  6. MAGNESIUM OXIDE [Concomitant]
     Indication: CONSTIPATION
     Dosage: 2 G/D
     Route: 048
     Dates: start: 20061115, end: 20061121
  7. LAXOBERON [Concomitant]
     Dosage: UNK, UNK
     Route: 048
     Dates: start: 20061121
  8. MENTAX [Concomitant]
     Indication: NAIL TINEA
     Route: 061
     Dates: start: 20061115
  9. CLARITHROMYCIN [Concomitant]
     Indication: PHARYNGITIS
     Dosage: 400 MG/D
     Route: 048
     Dates: start: 20061102, end: 20061105
  10. MYSLEE [Concomitant]
     Indication: INSOMNIA
     Dosage: 10 MG/D
     Route: 048
     Dates: start: 20061102
  11. PETROLATUM SALICYLICUM [Concomitant]
     Indication: NAIL TINEA
     Route: 061
     Dates: start: 20061115
  12. POTASSIUM CHLORIDE W/SODIUM CHLORIDE [Concomitant]
     Indication: COLONOSCOPY
     Route: 048
     Dates: start: 20061121

REACTIONS (7)
  - ALANINE AMINOTRANSFERASE INCREASED [None]
  - BLOOD ALKALINE PHOSPHATASE INCREASED [None]
  - BLOOD GLUCOSE DECREASED [None]
  - BLOOD TRIGLYCERIDES INCREASED [None]
  - GAMMA-GLUTAMYLTRANSFERASE INCREASED [None]
  - LIVER DISORDER [None]
  - LOW DENSITY LIPOPROTEIN DECREASED [None]
